FAERS Safety Report 21386630 (Version 2)
Quarter: 2022Q4

REPORT INFORMATION
  Report Type: Spontaneous
  Country: US (occurrence: US)
  Receive Date: 20220928
  Receipt Date: 20221226
  Transmission Date: 20230113
  Serious: Yes (Death, Hospitalization, Other)
  Sender: FDA-Public Use
  Company Number: US-TEVA-2022-US-2078605

PATIENT
  Sex: Male

DRUGS (12)
  1. HYDROCHLOROTHIAZIDE\VALSARTAN [Suspect]
     Active Substance: HYDROCHLOROTHIAZIDE\VALSARTAN
     Indication: Hypertension
     Dosage: 160/12.5MG
     Route: 065
     Dates: start: 20150212, end: 20160622
  2. HYDROCHLOROTHIAZIDE\VALSARTAN [Suspect]
     Active Substance: HYDROCHLOROTHIAZIDE\VALSARTAN
     Dosage: 160/12.5MG
     Dates: start: 20161011, end: 20180903
  3. VALSARTAN [Suspect]
     Active Substance: VALSARTAN
     Indication: Hypertension
     Dosage: IN -2016
  4. ATORVASTATIN CALCIUM [Concomitant]
     Active Substance: ATORVASTATIN CALCIUM
     Indication: Hyperlipidaemia
     Dosage: 20 MILLIGRAM DAILY;
     Dates: start: 2015, end: 2021
  5. METFORMIN HYDROCHLORIDE [Concomitant]
     Active Substance: METFORMIN HYDROCHLORIDE
     Indication: Diabetes mellitus
     Dosage: 1000 MILLIGRAM DAILY;
     Dates: start: 2015, end: 2021
  6. VICTOZA [Concomitant]
     Active Substance: LIRAGLUTIDE
     Indication: Diabetes mellitus
     Dosage: 6MG/ML AS NEEDED
     Dates: start: 2015, end: 2021
  7. CILOSTAZOL [Concomitant]
     Active Substance: CILOSTAZOL
     Indication: Peripheral vascular disorder
     Dosage: 100 MILLIGRAM DAILY;
     Dates: start: 2015, end: 2021
  8. TAMSULOSIN HYDROCHLORIDE [Concomitant]
     Active Substance: TAMSULOSIN HYDROCHLORIDE
     Indication: Prostatomegaly
     Dosage: 4 MILLIGRAM DAILY;
     Dates: start: 2017, end: 2021
  9. MONTELUKAST SODIUM [Concomitant]
     Active Substance: MONTELUKAST SODIUM
     Indication: Asthma
     Dosage: 10 MILLIGRAM DAILY;
     Dates: start: 2017, end: 2021
  10. MELATONIN [Concomitant]
     Active Substance: MELATONIN
     Indication: Sleep disorder
     Dosage: 3MG AS NEEDED
     Dates: start: 2015, end: 2021
  11. FISH OIL [Concomitant]
     Active Substance: FISH OIL
     Indication: Blood cholesterol abnormal
     Dates: start: 2015, end: 2021
  12. Men 50 Plus Multivitamin [Concomitant]
     Indication: Nutritional supplementation
     Dosage: 1 DOSAGE FORMS DAILY;
     Dates: start: 2015, end: 2021

REACTIONS (2)
  - Adult failure to thrive [Fatal]
  - Bladder cancer [Unknown]
